FAERS Safety Report 5706390-1 (Version None)
Quarter: 2008Q2

REPORT INFORMATION
  Report Type: 
  Country: None (occurrence: None)
  Receive Date: 20080415
  Receipt Date: 20080410
  Transmission Date: 20081010
  Serious: Yes (Hospitalization)
  Sender: FDA-Public Use
  Company Number: FR-MERCK-0804FRA00059

PATIENT
  Age: 58 Year
  Sex: Male

DRUGS (4)
  1. ZOCOR [Suspect]
     Route: 048
  2. LEVOFLOXACIN [Suspect]
     Indication: LUNG DISORDER
     Route: 048
     Dates: end: 20071218
  3. ACEBUTOLOL HYDROCHLORIDE [Concomitant]
     Indication: HYPERTENSION
     Route: 048
  4. ANTINEOPLASTIC (UNSPECIFIED) [Concomitant]
     Indication: CHRONIC LYMPHOCYTIC LEUKAEMIA
     Route: 065

REACTIONS (1)
  - TENDON RUPTURE [None]
